FAERS Safety Report 5430055-7 (Version None)
Quarter: 2007Q3

REPORT INFORMATION
  Report Type: 
  Country: None (occurrence: None)
  Receive Date: 20070829
  Receipt Date: 20070817
  Transmission Date: 20080115
  Serious: Yes (Death)
  Sender: FDA-Public Use
  Company Number: JP-PFIZER INC-2007068733

PATIENT
  Age: 52 Year
  Sex: Female

DRUGS (4)
  1. VFEND [Suspect]
     Indication: ASPERGILLOSIS
     Route: 042
  2. MICAFUNGIN [Concomitant]
  3. AMBISOME [Concomitant]
  4. TACROLIMUS [Concomitant]

REACTIONS (1)
  - DEATH [None]
